FAERS Safety Report 6482697-8 (Version None)
Quarter: 2009Q4

REPORT INFORMATION
  Report Type: 
  Country: None (occurrence: None)
  Receive Date: 20091209
  Receipt Date: 20091119
  Transmission Date: 20100525
  Serious: No
  Sender: FDA-Public Use
  Company Number: US-B.I. PHARMACEUTICALS,INC./RIDGEFIELD-2009-BP-13539BP

PATIENT
  Sex: Female

DRUGS (1)
  1. CATAPRES-TTS-1 [Suspect]
     Dosage: 0.3 MG
     Route: 061
     Dates: start: 20090701

REACTIONS (2)
  - APPLICATION SITE PAIN [None]
  - BLOOD PRESSURE ABNORMAL [None]
